FAERS Safety Report 6788354-2 (Version None)
Quarter: 2010Q2

REPORT INFORMATION
  Report Type: 
  Country: None (occurrence: None)
  Receive Date: 20100623
  Receipt Date: 20080417
  Transmission Date: 20101027
  Serious: Yes (Other)
  Sender: FDA-Public Use
  Company Number: US-PFIZER INC-2008017412

PATIENT
  Sex: Male

DRUGS (4)
  1. SUTENT [Suspect]
     Indication: RENAL CANCER METASTATIC
     Route: 048
  2. LUPRON [Concomitant]
  3. ERLOTINIB [Concomitant]
     Indication: METASTATIC RENAL CELL CARCINOMA
  4. BEVACIZUMAB [Concomitant]
     Indication: METASTATIC RENAL CELL CARCINOMA

REACTIONS (1)
  - EOSINOPHILIA [None]
